FAERS Safety Report 14100381 (Version 1)
Quarter: 2017Q4

REPORT INFORMATION
  Report Type: Spontaneous
  Country: US (occurrence: US)
  Receive Date: 20171017
  Receipt Date: 20171017
  Transmission Date: 20180321
  Serious: Yes (Other)
  Sender: FDA-Public Use
  Company Number: PHEH2017US032900

PATIENT
  Sex: Male

DRUGS (2)
  1. AFINITOR [Suspect]
     Active Substance: EVEROLIMUS
     Indication: CARCINOID SYNDROME
     Dosage: UNK
     Route: 048
  2. TELOTRISTAT ETHYL [Suspect]
     Active Substance: TELOTRISTAT ETHYL
     Indication: CARCINOID SYNDROME
     Dosage: 250 MG, BID (TWICE A DAY)
     Route: 048

REACTIONS (14)
  - Diarrhoea [Unknown]
  - Pelvic pain [Unknown]
  - Hot flush [Unknown]
  - Gastrointestinal disorder [Unknown]
  - Back pain [Unknown]
  - Steatorrhoea [Unknown]
  - Blood albumin decreased [Unknown]
  - Carcinoid syndrome [Unknown]
  - Serum serotonin increased [Unknown]
  - Blood calcium decreased [Unknown]
  - Chest pain [Unknown]
  - Malignant neoplasm progression [Unknown]
  - Decreased appetite [Unknown]
  - Blood glucose increased [Unknown]
